FAERS Safety Report 4785336-7 (Version None)
Quarter: 2005Q3

REPORT INFORMATION
  Report Type: 
  Country: None (occurrence: None)
  Receive Date: 20050914
  Receipt Date: 20040811
  Transmission Date: 20060218
  Serious: Yes (Death)
  Sender: FDA-Public Use
  Company Number: 163-20785-04050575

PATIENT
  Age: 72 Year
  Sex: Female
  Weight: 63.9572 kg

DRUGS (10)
  1. THALOMID [Suspect]
     Indication: MULTIPLE MYELOMA
     Dosage: START AT 50 MG ESCALATING TO 200 MG, QHS, ORAL
     Route: 048
     Dates: start: 20040429, end: 20040501
  2. CELEBREX [Concomitant]
  3. ULTRACET (ULTRACET) [Concomitant]
  4. SYNTHROID [Concomitant]
  5. CORZIDE (CORGARETIC) [Concomitant]
  6. LESCOL [Concomitant]
  7. DECADRON [Concomitant]
  8. RADIATION [Concomitant]
  9. ZOMETA [Concomitant]
  10. BACTRIM [Concomitant]

REACTIONS (2)
  - DEATH [None]
  - PULMONARY EMBOLISM [None]
